FAERS Safety Report 7243240-9 (Version None)
Quarter: 2011Q1

REPORT INFORMATION
  Report Type: 
  Country: None (occurrence: None)
  Receive Date: 20110125
  Receipt Date: 20110120
  Transmission Date: 20110831
  Serious: Yes (Hospitalization, Other)
  Sender: FDA-Public Use
  Company Number: ES-ROCHE-741091

PATIENT
  Sex: Male
  Weight: 55 kg

DRUGS (3)
  1. RIBAVARIN [Suspect]
     Indication: HEPATITIS C
     Route: 048
     Dates: start: 20100601, end: 20100901
  2. NEUPOGEN [Concomitant]
     Indication: NEUTROPENIA
     Dosage: DOSE: 3 MU, WEEKLY
     Route: 058
     Dates: start: 20100801, end: 20100901
  3. PEGINTERFERON ALFA-2A [Suspect]
     Indication: HEPATITIS C
     Dosage: FREQUENCY: WEEKLY
     Route: 058
     Dates: start: 20100601, end: 20100901

REACTIONS (2)
  - APPENDICITIS [None]
  - NEUTROPENIA [None]
